FAERS Safety Report 4400920-8 (Version None)
Quarter: 2004Q3

REPORT INFORMATION
  Report Type: 
  Country: None (occurrence: None)
  Receive Date: 20040907
  Receipt Date: 20030811
  Transmission Date: 20050211
  Serious: No
  Sender: FDA-Public Use
  Company Number: US-BRISTOL-MYERS SQUIBB COMPANY-12351284

PATIENT
  Age: 83 Year
  Sex: Female
  Weight: 49 kg

DRUGS (8)
  1. COUMADIN [Suspect]
     Indication: ATRIAL FIBRILLATION
     Dosage: DOSAGE: ONE OR TWO TABLETS DAILY  OR ^SIMILAR DOSING^ (BASED ON PT TIME).
     Route: 048
  2. VERAPAMIL [Concomitant]
  3. LASIX [Concomitant]
  4. K-DUR 10 [Concomitant]
  5. ALLOPURINOL [Concomitant]
  6. SYNTHROID [Concomitant]
  7. PRANDIN [Concomitant]
  8. XANAX [Concomitant]

REACTIONS (1)
  - ALOPECIA [None]
